FAERS Safety Report 14206383 (Version 1)
Quarter: 2017Q4

REPORT INFORMATION
  Report Type: Other
  Country: BR (occurrence: BR)
  Receive Date: 20171120
  Receipt Date: 20171120
  Transmission Date: 20180321
  Serious: Yes (Hospitalization)
  Sender: FDA-Public Use
  Company Number: BR-B. BRAUN MEDICAL INC.-2034688

PATIENT
  Age: 56 Year
  Sex: Male

DRUGS (1)
  1. LIDOCAINE HYDROCHLORIDE AND DEXTROSE [Suspect]
     Active Substance: DEXTROSE\LIDOCAINE HYDROCHLORIDE

REACTIONS (1)
  - Tongue necrosis [None]
